FAERS Safety Report 13040539 (Version 1)
Quarter: 2016Q4

REPORT INFORMATION
  Report Type: Spontaneous
  Country: US (occurrence: US)
  Receive Date: 20161219
  Receipt Date: 20161219
  Transmission Date: 20170207
  Serious: No
  Sender: FDA-Public Use
  Company Number: US-SA-2016SA052892

PATIENT
  Age: 82 Year
  Sex: Male

DRUGS (22)
  1. NASACORT AQ [Concomitant]
     Active Substance: TRIAMCINOLONE ACETONIDE
  2. ELIQUIS [Suspect]
     Active Substance: APIXABAN
     Route: 065
  3. OMEGA 3 [Concomitant]
     Active Substance: OMEGA-3 FATTY ACIDS
  4. CETIRIZINE [Concomitant]
     Active Substance: CETIRIZINE HYDROCHLORIDE
  5. LISINOPRIL. [Concomitant]
     Active Substance: LISINOPRIL
  6. FAMOTIDINE. [Concomitant]
     Active Substance: FAMOTIDINE
  7. MAGNESIUM [Concomitant]
     Active Substance: MAGNESIUM
  8. VITAMIN B12 [Concomitant]
     Active Substance: CYANOCOBALAMIN
  9. VITAMIN D [Concomitant]
     Active Substance: CHOLECALCIFEROL
  10. ATORVASTATIN [Concomitant]
     Active Substance: ATORVASTATIN
  11. ALBUTEROL SULFATE W/IPRATROPIUM BROMIDE [Concomitant]
     Active Substance: ALBUTEROL SULFATE\IPRATROPIUM BROMIDE
  12. NASONEX [Concomitant]
     Active Substance: MOMETASONE FUROATE
  13. TYLENOL [Concomitant]
     Active Substance: ACETAMINOPHEN
  14. VITAMIN B6 [Concomitant]
     Active Substance: PYRIDOXINE HYDROCHLORIDE
  15. CALCIUM CARBONATE. [Concomitant]
     Active Substance: CALCIUM CARBONATE
  16. AMBRISENTAN [Suspect]
     Active Substance: AMBRISENTAN
     Indication: PULMONARY HYPERTENSION
     Route: 065
     Dates: start: 20160127
  17. ADCIRCA [Suspect]
     Active Substance: TADALAFIL
     Route: 065
  18. PLAVIX [Suspect]
     Active Substance: CLOPIDOGREL BISULFATE
     Route: 065
  19. CALCITRIOL. [Concomitant]
     Active Substance: CALCITRIOL
  20. METOPROLOL SUCCINATE. [Concomitant]
     Active Substance: METOPROLOL SUCCINATE
  21. SALBUTAMOL SULFATE [Concomitant]
     Active Substance: ALBUTEROL SULFATE
  22. CELEXA [Concomitant]
     Active Substance: CITALOPRAM HYDROBROMIDE

REACTIONS (3)
  - Bleeding time prolonged [Unknown]
  - Impaired healing [Unknown]
  - Laceration [Unknown]

NARRATIVE: CASE EVENT DATE: 20160221
